FAERS Safety Report 4385476-0 (Version None)
Quarter: 2004Q2

REPORT INFORMATION
  Report Type: 
  Country: None (occurrence: None)
  Receive Date: 20040622
  Receipt Date: 20040607
  Transmission Date: 20050107
  Serious: Yes (Other)
  Sender: FDA-Public Use
  Company Number: 237321

PATIENT
  Sex: Female
  Weight: 5.1 kg

DRUGS (2)
  1. ACTRAPID(R) PENFILL(R) HM(GE) 3 ML(INSULIN HUMAN) SOLUTION FOR INJECTI [Suspect]
     Indication: DIABETES MELLITUS
     Dosage: 36 IU, QD, INTRAUTERINE
     Route: 015
     Dates: start: 20031029
  2. PROTAPHANE PENFILL (INSULIN HUMAN) [Concomitant]

REACTIONS (5)
  - CAESAREAN SECTION [None]
  - DRUG EXPOSURE DURING PREGNANCY [None]
  - FEEDING PROBLEM IN NEWBORN [None]
  - HYPOGLYCAEMIA NEONATAL [None]
  - MACROSOMIA [None]
